FAERS Safety Report 4982387-4 (Version None)
Quarter: 2006Q1

REPORT INFORMATION
  Report Type: 
  Country: None (occurrence: None)
  Receive Date: 20060227
  Receipt Date: 20050721
  Transmission Date: 20060701
  Serious: Yes (Other)
  Sender: FDA-Public Use
  Company Number: WAES 0507USA03277

PATIENT
  Age: 54 Year
  Sex: Male

DRUGS (1)
  1. ZOCOR [Suspect]
     Dosage: 20 MG/DAILY/PO
     Route: 048

REACTIONS (2)
  - RESTLESS LEGS SYNDROME [None]
  - RHABDOMYOLYSIS [None]
